FAERS Safety Report 16960636 (Version 3)
Quarter: 2021Q2

REPORT INFORMATION
  Report Type: Spontaneous
  Country: FR (occurrence: FR)
  Receive Date: 20191025
  Receipt Date: 20210421
  Transmission Date: 20210716
  Serious: Yes (Death, Hospitalization, Other)
  Sender: FDA-Public Use
  Company Number: FR-AMGEN-FRASP2019177240

PATIENT
  Age: 60 Year
  Sex: Female

DRUGS (11)
  1. VELCADE [Suspect]
     Active Substance: BORTEZOMIB
     Indication: PLASMA CELL MYELOMA
     Dosage: UNK
     Route: 065
     Dates: start: 20190418, end: 20190513
  2. REVLIMID [Suspect]
     Active Substance: LENALIDOMIDE
     Indication: PLASMA CELL MYELOMA
     Dosage: 25 MILLIGRAM
     Route: 065
     Dates: start: 20181221
  3. CARFILZOMIB [Suspect]
     Active Substance: CARFILZOMIB
     Dosage: UNK
     Route: 065
     Dates: start: 20190517, end: 20190517
  4. CARFILZOMIB [Suspect]
     Active Substance: CARFILZOMIB
     Indication: PLASMA CELL MYELOMA
     Dosage: UNK
     Route: 065
     Dates: start: 20190116, end: 20190409
  5. DEXAMETHASONE. [Suspect]
     Active Substance: DEXAMETHASONE
     Indication: PLASMA CELL MYELOMA
     Dosage: UNK
     Route: 065
     Dates: start: 20190116, end: 20190409
  6. DARZALEX [Suspect]
     Active Substance: DARATUMUMAB
     Indication: PRODUCT USED FOR UNKNOWN INDICATION
     Dosage: UNK
     Route: 065
     Dates: start: 20190116, end: 20190409
  7. INNOHEP [Concomitant]
     Active Substance: TINZAPARIN SODIUM
     Indication: PROPHYLAXIS
     Dosage: UNK
     Route: 058
     Dates: start: 20180813
  8. DARZALEX [Suspect]
     Active Substance: DARATUMUMAB
     Dosage: UNK
     Route: 065
     Dates: end: 20190517
  9. DOXORUBICINE [DOXORUBICIN] [Suspect]
     Active Substance: DOXORUBICIN
     Indication: PLASMA CELL MYELOMA
     Dosage: UNK
     Route: 065
     Dates: start: 20190418, end: 20190513
  10. DEXAMETHASONE. [Suspect]
     Active Substance: DEXAMETHASONE
     Dosage: UNK
     Route: 065
     Dates: start: 20190418, end: 20190513
  11. THALIDOMIDE [Suspect]
     Active Substance: THALIDOMIDE
     Indication: PLASMA CELL MYELOMA
     Dosage: UNK
     Route: 065
     Dates: start: 20190418, end: 20190513

REACTIONS (23)
  - Malnutrition [Fatal]
  - Dyspepsia [Fatal]
  - Cholestasis [Fatal]
  - Thrombocytopenia [Fatal]
  - Pruritus [Fatal]
  - Sleep disorder [Fatal]
  - General physical health deterioration [Fatal]
  - Jaundice [Fatal]
  - Loss of personal independence in daily activities [Fatal]
  - Constipation [Fatal]
  - Pain [Fatal]
  - Anaemia [Fatal]
  - Disease progression [Fatal]
  - Body dysmorphic disorder [Fatal]
  - Decubitus ulcer [Fatal]
  - Anxiety disorder [Fatal]
  - Diarrhoea [Fatal]
  - Ascites [Fatal]
  - Epistaxis [Fatal]
  - Death [Fatal]
  - Hepatic cirrhosis [Fatal]
  - Joint ankylosis [Fatal]
  - Hepatocellular injury [Fatal]

NARRATIVE: CASE EVENT DATE: 20190403
